FAERS Safety Report 9969362 (Version 1)
Quarter: 2014Q1

REPORT INFORMATION
  Report Type: Report from Study
  Country: GB (occurrence: GB)
  Receive Date: 20140306
  Receipt Date: 20140306
  Transmission Date: 20141002
  Serious: Yes (Hospitalization)
  Sender: FDA-Public Use
  Company Number: GB-ROCHE-1357463

PATIENT
  Sex: Female
  Weight: 65 kg

DRUGS (2)
  1. RITUXIMAB [Suspect]
     Indication: RHEUMATOID ARTHRITIS
     Dosage: DATE OF LAST DOSE PRIOR TO SAE: 15/APR/2013
     Route: 065
     Dates: start: 20081031
  2. METHOTREXATE [Concomitant]
     Route: 065
     Dates: end: 20131209

REACTIONS (2)
  - Confusional state [Unknown]
  - Abnormal behaviour [Unknown]
